FAERS Safety Report 12117517 (Version 1)
Quarter: 2016Q1

REPORT INFORMATION
  Report Type: Spontaneous
  Country: US (occurrence: US)
  Receive Date: 20160225
  Receipt Date: 20160225
  Transmission Date: 20160526
  Serious: Yes (Hospitalization)
  Sender: FDA-Public Use
  Company Number: US-ROCHE-1715029

PATIENT
  Sex: Female
  Weight: 52.16 kg

DRUGS (7)
  1. VALIUM [Suspect]
     Active Substance: DIAZEPAM
     Indication: SEIZURE
     Dosage: STARTED AT 25 YEARS OF AGE.
     Route: 065
  2. SYNTHROID [Concomitant]
     Active Substance: LEVOTHYROXINE SODIUM
     Dosage: ONE HALF TABLET DAILY
     Route: 065
  3. DILANTIN [Suspect]
     Active Substance: PHENYTOIN
     Indication: SEIZURE
     Dosage: 5/8TH TABLESPOON 3 TIMES A DAY.?TWO TABLETS EVERY MORNING, STARTED TAKING DILANTIN AT 25 YEARS OF AG
     Route: 065
  4. MYSOLINE [Concomitant]
     Active Substance: PRIMIDONE
     Indication: SEIZURE
     Dosage: 1/2 IN AM 1/2 IN AFTERNOON AND 3/4 AT NIGHT?STARTED IN 1980^S OR 1990^S
     Route: 065
  5. NITROSTAT [Concomitant]
     Active Substance: NITROGLYCERIN
     Dosage: STARTED TAKING 14 -16 YEARS AGO. USED MAY BE ONCE A YEAR
     Route: 065
  6. EPIPEN [Concomitant]
     Active Substance: EPINEPHRINE
     Indication: HYPERSENSITIVITY
     Dosage: HAS NEVER HAD TO USE IT.
     Route: 065
  7. DILANTIN [Suspect]
     Active Substance: PHENYTOIN
     Dosage: 5/8TH TABLE SPOON SUSPENSION
     Route: 065

REACTIONS (2)
  - Pharyngeal oedema [Not Recovered/Not Resolved]
  - Rash [Not Recovered/Not Resolved]
